FAERS Safety Report 5690956-1 (Version None)
Quarter: 2008Q2

REPORT INFORMATION
  Report Type: 
  Country: None (occurrence: None)
  Receive Date: 20080401
  Receipt Date: 20080321
  Transmission Date: 20081010
  Serious: Yes (Other)
  Sender: FDA-Public Use
  Company Number: JP-SANOFI-SYNTHELABO-A01200801681

PATIENT
  Age: 71 Year
  Sex: Female
  Weight: 48 kg

DRUGS (9)
  1. DIGOXIN [Concomitant]
     Route: 048
     Dates: end: 20080130
  2. ASPIRIN [Concomitant]
     Route: 048
     Dates: end: 20080130
  3. ALFACALCIDOL [Concomitant]
     Dosage: 0.5 MICROG
     Route: 048
  4. CALCIUM LACTATE [Concomitant]
     Dosage: 1.0 GRAM
  5. MAGNESIUM OXIDE [Concomitant]
     Dosage: 1.0 GRAM
     Route: 048
  6. FLUOROURACIL [Suspect]
     Dosage: FLUOROURACIL 550 MG/BODY=401.5 MG/M2 IN BOLUS THEN 3300 MG/BODY=2408.8 MG/M2 AS INFUSION UNK
     Route: 042
     Dates: start: 20070721, end: 20070722
  7. OXALIPLATIN [Suspect]
     Indication: COLON CANCER
     Dosage: 115 MG/BODY=83.9 MG/M2
     Route: 042
     Dates: start: 20070727, end: 20070727
  8. OXALIPLATIN [Suspect]
     Indication: METASTASES TO LYMPH NODES
     Dosage: 115 MG/BODY=83.9 MG/M2
     Route: 042
     Dates: start: 20070727, end: 20070727
  9. LEUCOVORIN CALCIUM [Concomitant]
     Dosage: 275 MG/BODY=200.7 MG/M2
     Route: 042
     Dates: start: 20070727, end: 20070727

REACTIONS (2)
  - LEUKOPENIA [None]
  - NEUTROPENIA [None]
